FAERS Safety Report 14487276 (Version 1)
Quarter: 2018Q1

REPORT INFORMATION
  Report Type: Spontaneous
  Country: CH (occurrence: CH)
  Receive Date: 20180205
  Receipt Date: 20180205
  Transmission Date: 20180509
  Serious: Yes (Hospitalization, Other)
  Sender: FDA-Public Use
  Company Number: CH-BAYER-2017-230222

PATIENT
  Age: 31 Year
  Sex: Female
  Weight: 70 kg

DRUGS (1)
  1. JAYDESS [Suspect]
     Active Substance: LEVONORGESTREL
     Dosage: 14 MCG/24HR, CONT
     Route: 015
     Dates: start: 20151008, end: 20171128

REACTIONS (8)
  - Peritoneal haemorrhage [None]
  - Abdominal pain lower [Recovered/Resolved]
  - Vaginal haemorrhage [Recovered/Resolved]
  - Haematosalpinx [None]
  - Fallopian tube obstruction [None]
  - Drug ineffective [None]
  - Ectopic pregnancy [Recovered/Resolved]
  - Abortion of ectopic pregnancy [None]

NARRATIVE: CASE EVENT DATE: 201710
